FAERS Safety Report 23680305 (Version 1)
Quarter: 2024Q1

REPORT INFORMATION
  Report Type: Other
  Country: NO (occurrence: NO)
  Receive Date: 20240328
  Receipt Date: 20240328
  Transmission Date: 20240410
  Serious: Yes (Other)
  Sender: FDA-Public Use
  Company Number: None

PATIENT
  Age: 45 Year
  Sex: Female

DRUGS (15)
  1. PHENOBARBITAL [Suspect]
     Active Substance: PHENOBARBITAL
     Indication: Seizure
     Dosage: UNK
     Route: 065
  2. TOPIRAMATE [Suspect]
     Active Substance: TOPIRAMATE
     Indication: Seizure
     Dosage: UNK
     Route: 065
  3. GABAPENTIN [Suspect]
     Active Substance: GABAPENTIN
     Indication: Seizure
     Dosage: UNK
     Route: 065
  4. ZONISAMIDE [Suspect]
     Active Substance: ZONISAMIDE
     Indication: Seizure
     Dosage: UNK
     Route: 065
  5. KEPPRA [Suspect]
     Active Substance: LEVETIRACETAM
     Indication: Seizure
     Dosage: UNK
     Route: 065
  6. VALPROATE [Suspect]
     Active Substance: VALPROIC ACID
     Indication: Seizure
     Dosage: UNK
     Route: 065
  7. VIMPAT [Suspect]
     Active Substance: LACOSAMIDE
     Indication: Seizure
     Dosage: UNK
     Route: 065
  8. PERAMPANEL [Suspect]
     Active Substance: PERAMPANEL
     Indication: Seizure
     Dosage: UNK
     Route: 065
  9. LAMOTRIGINE [Suspect]
     Active Substance: LAMOTRIGINE
     Indication: Seizure
     Dosage: UNK
     Route: 065
  10. CARBAMAZEPINE [Suspect]
     Active Substance: CARBAMAZEPINE
     Indication: Seizure
     Dosage: UNK
     Route: 065
  11. PHENYTOIN [Suspect]
     Active Substance: PHENYTOIN
     Indication: Seizure
     Dosage: UNK
     Route: 065
  12. BRIVIACT [Suspect]
     Active Substance: BRIVARACETAM
     Indication: Seizure
     Dosage: UNK
     Route: 065
  13. CLONAZEPAM [Suspect]
     Active Substance: CLONAZEPAM
     Indication: Seizure
     Dosage: UNK
     Route: 065
  14. CLOBAZAM [Suspect]
     Active Substance: CLOBAZAM
     Indication: Seizure
     Dosage: UNK
     Route: 065
  15. FOSPHENYTOIN [Concomitant]
     Active Substance: FOSPHENYTOIN
     Indication: Seizure
     Dosage: UNK
     Route: 065

REACTIONS (4)
  - Hemiparesis [Not Recovered/Not Resolved]
  - Seizure [Unknown]
  - Cognitive disorder [Recovered/Resolved]
  - Multiple-drug resistance [Unknown]
